FAERS Safety Report 17888739 (Version 1)
Quarter: 2020Q2

REPORT INFORMATION
  Report Type: Report from Study
  Country: US (occurrence: US)
  Receive Date: 20200612
  Receipt Date: 20200612
  Transmission Date: 20200714
  Serious: Yes (Other)
  Sender: FDA-Public Use
  Company Number: US-ACADIA PHARMACEUTICALS INC.-ACA-2020-PIM-001857

PATIENT
  Age: 66 Year
  Sex: Female

DRUGS (2)
  1. NUPLAZID [Suspect]
     Active Substance: PIMAVANSERIN TARTRATE
     Indication: PARKINSON^S DISEASE
     Dosage: 10 MILLIGRAM, QD
     Route: 048
     Dates: start: 20200116, end: 2020
  2. NUPLAZID [Suspect]
     Active Substance: PIMAVANSERIN TARTRATE
     Dosage: 10 MG, QD
     Route: 048

REACTIONS (4)
  - Fall [Unknown]
  - Prescribed underdose [Unknown]
  - Product dose omission [Unknown]
  - Contusion [Unknown]

NARRATIVE: CASE EVENT DATE: 202005
